FAERS Safety Report 6401515-7 (Version None)
Quarter: 2009Q4

REPORT INFORMATION
  Report Type: 
  Country: None (occurrence: None)
  Receive Date: 20091013
  Receipt Date: 20091013
  Transmission Date: 20100525
  Serious: Yes (Life-Threatening, Hospitalization)
  Sender: FDA-Public Use
  Company Number: None

PATIENT
  Age: 39 Year
  Sex: Female
  Weight: 113.6 kg

DRUGS (1)
  1. ARTHROTEC [Suspect]
     Indication: ARTHRALGIA
     Dosage: BID PO
     Route: 048
     Dates: start: 20090921, end: 20090924

REACTIONS (2)
  - BONE MARROW FAILURE [None]
  - DRUG TOXICITY [None]
